FAERS Safety Report 7762472-4 (Version None)
Quarter: 2011Q3

REPORT INFORMATION
  Report Type: 
  Country: None (occurrence: None)
  Receive Date: 20110920
  Receipt Date: 20110722
  Transmission Date: 20111222
  Serious: No
  Sender: FDA-Public Use
  Company Number: US-MYLANLABS-2011S1015341

PATIENT

DRUGS (2)
  1. CARBIDOPA AND LEVODOPA [Suspect]
  2. CARBIDOPA AND LEVODOPA [Suspect]

REACTIONS (2)
  - HALLUCINATION [None]
  - NAUSEA [None]
